FAERS Safety Report 6552772-8 (Version None)
Quarter: 2010Q1

REPORT INFORMATION
  Report Type: 
  Country: None (occurrence: None)
  Receive Date: 20100126
  Receipt Date: 20100115
  Transmission Date: 20100710
  Serious: Yes (Death)
  Sender: FDA-Public Use
  Company Number: US-JNJCH-2010001891

PATIENT
  Age: 28 Year
  Sex: Female

DRUGS (7)
  1. NICOTINE (UNSPECIFIED) [Suspect]
     Indication: SUICIDE ATTEMPT
     Dosage: TEXT:UNKNOWN
     Route: 048
  2. QUETIAPINE [Suspect]
     Indication: SUICIDE ATTEMPT
     Dosage: TEXT:UNKNOWN
     Route: 048
  3. ALPRAZOLAM [Suspect]
     Indication: SUICIDE ATTEMPT
     Dosage: TEXT:UNKNOWN
     Route: 048
  4. BENZODIAZEPINE DERIVATIVES [Suspect]
     Indication: SUICIDE ATTEMPT
     Dosage: TEXT:UNKNOWN
     Route: 048
  5. ETHANOL [Suspect]
     Indication: SUICIDE ATTEMPT
     Dosage: TEXT:UNKNOWN
     Route: 048
  6. ATENOLOL [Suspect]
     Indication: SUICIDE ATTEMPT
     Dosage: TEXT:UNKNOWN
     Route: 048
  7. PREGABALIN [Suspect]
     Indication: SUICIDE ATTEMPT
     Dosage: TEXT:UNKNOWN
     Route: 048

REACTIONS (3)
  - DRUG SCREEN POSITIVE [None]
  - DRUG TOXICITY [None]
  - MULTIPLE DRUG OVERDOSE [None]
